FAERS Safety Report 21660124 (Version 1)
Quarter: 2022Q4

REPORT INFORMATION
  Report Type: Other
  Country: None (occurrence: ES)
  Receive Date: 20221130
  Receipt Date: 20221130
  Transmission Date: 20230113
  Serious: Yes (Other)
  Sender: FDA-Public Use
  Company Number: ES-MLV Pharma LLC-2135372

PATIENT
  Age: 66 Year
  Sex: Female

DRUGS (4)
  1. ROPINIROLE HYDROCHLORIDE [Suspect]
     Active Substance: ROPINIROLE HYDROCHLORIDE
     Indication: Product used for unknown indication
     Route: 065
  2. LEVODOPA [Suspect]
     Active Substance: LEVODOPA
     Route: 065
  3. SAFINAMIDE [Suspect]
     Active Substance: SAFINAMIDE
     Route: 065
  4. AMANTADINE. [Suspect]
     Active Substance: AMANTADINE HYDROCHLORIDE
     Route: 065

REACTIONS (1)
  - Dyskinesia hyperpyrexia syndrome [Recovered/Resolved]
